FAERS Safety Report 4785003-X (Version None)
Quarter: 2005Q3

REPORT INFORMATION
  Report Type: 
  Country: None (occurrence: None)
  Receive Date: 20050928
  Receipt Date: 20050914
  Transmission Date: 20060218
  Serious: Yes (Hospitalization)
  Sender: FDA-Public Use
  Company Number: USA0509108234

PATIENT
  Age: 80 Year
  Sex: Female

DRUGS (1)
  1. FORTEO [Suspect]
     Indication: OSTEOPOROSIS
     Dates: start: 20050601

REACTIONS (4)
  - ASTHENIA [None]
  - CONDITION AGGRAVATED [None]
  - DIVERTICULITIS [None]
  - PHARMACEUTICAL PRODUCT COMPLAINT [None]
